FAERS Safety Report 7815633-X (Version None)
Quarter: 2011Q4

REPORT INFORMATION
  Report Type: 
  Country: None (occurrence: None)
  Receive Date: 20111014
  Receipt Date: 20111004
  Transmission Date: 20120403
  Serious: Yes (Other)
  Sender: FDA-Public Use
  Company Number: US-ELI_LILLY_AND_COMPANY-US201110000780

PATIENT
  Sex: Male

DRUGS (1)
  1. ALIMTA [Suspect]

REACTIONS (2)
  - NEOPLASM PROGRESSION [None]
  - MYOCARDIAL INFARCTION [None]
